FAERS Safety Report 9696908 (Version 2)
Quarter: 2013Q4

REPORT INFORMATION
  Report Type: Spontaneous
  Country: US (occurrence: US)
  Receive Date: 20131119
  Receipt Date: 20131119
  Transmission Date: 20140711
  Serious: No
  Sender: FDA-Public Use
  Company Number: US-GILEAD-2007-0013936

PATIENT
  Sex: Female

DRUGS (6)
  1. LETAIRIS [Suspect]
     Indication: PULMONARY HYPERTENSION
     Route: 048
     Dates: start: 200708
  2. LISINOPRIL [Concomitant]
     Route: 048
  3. WARFARIN [Concomitant]
     Route: 048
  4. WARFARIN [Concomitant]
     Route: 048
  5. COMBIVENT [Concomitant]
  6. NEXIUM [Concomitant]
     Route: 048

REACTIONS (2)
  - Local swelling [Unknown]
  - Sinus disorder [Unknown]
